FAERS Safety Report 9546569 (Version 3)
Quarter: 2014Q2

REPORT INFORMATION
  Report Type: Spontaneous
  Country: BR (occurrence: BR)
  Receive Date: 20130923
  Receipt Date: 20140508
  Transmission Date: 20141212
  Serious: Yes (Other)
  Sender: FDA-Public Use
  Company Number: BR-AMGEN-BRASP2013017534

PATIENT
  Age: 69 Year
  Sex: Female
  Weight: 50 kg

DRUGS (9)
  1. ENBREL [Suspect]
     Indication: RHEUMATOID ARTHRITIS
     Dosage: 50 MG, QWK
     Route: 058
     Dates: start: 20130301, end: 20140110
  2. ARADOIS [Concomitant]
     Indication: HYPERTENSION
     Dosage: 50 MG, 1X/DAY
  3. ARADOIS [Concomitant]
     Dosage: UNK
  4. METICORTEN [Concomitant]
     Indication: ARTHRITIS
     Dosage: UNK
  5. ULTRACET [Concomitant]
     Indication: PAIN
     Dosage: UNK
  6. PANTOPRAZOLE [Concomitant]
     Dosage: UNK
  7. PURAN T4 [Concomitant]
     Indication: THYROID DISORDER
     Dosage: UNK
  8. PREDNISONE [Concomitant]
     Indication: PAIN
     Dosage: UNK
  9. CODATEN [Concomitant]
     Indication: PAIN
     Dosage: UNK

REACTIONS (4)
  - Pyrexia [Unknown]
  - Infection [Unknown]
  - Injection site hypersensitivity [Unknown]
  - Urinary tract infection [Unknown]
